FAERS Safety Report 7207629-6 (Version None)
Quarter: 2011Q1

REPORT INFORMATION
  Report Type: 
  Country: None (occurrence: None)
  Receive Date: 20110103
  Receipt Date: 20101223
  Transmission Date: 20110831
  Serious: Yes (Hospitalization, Disabling)
  Sender: FDA-Public Use
  Company Number: US-ELI_LILLY_AND_COMPANY-US201012006534

PATIENT
  Age: 61 Year
  Sex: Female

DRUGS (1)
  1. HUMATROPE [Suspect]
     Indication: HYPOPITUITARISM

REACTIONS (3)
  - MOBILITY DECREASED [None]
  - INCORRECT DOSE ADMINISTERED [None]
  - INTERVERTEBRAL DISC PROTRUSION [None]
